FAERS Safety Report 8078878-2 (Version None)
Quarter: 2012Q1

REPORT INFORMATION
  Report Type: 
  Country: None (occurrence: None)
  Receive Date: 20120128
  Receipt Date: 20110423
  Transmission Date: 20120608
  Serious: No
  Sender: FDA-Public Use
  Company Number: US-ABBOTT-11P-163-0721417-00

PATIENT
  Age: 50 Year
  Sex: Female

DRUGS (10)
  1. SIMVASTATIN [Concomitant]
     Indication: BLOOD CHOLESTEROL INCREASED
  2. DICYCLOMINE [Concomitant]
     Indication: DIARRHOEA
  3. TYLENOL W/ CODEINE NO. 4 [Concomitant]
     Indication: FIBROMYALGIA
  4. TRAZODONE HCL [Concomitant]
     Indication: INSOMNIA
     Dosage: AT BEDTIME
  5. HUMIRA [Suspect]
     Indication: CROHN'S DISEASE
  6. BENADRYL [Concomitant]
     Indication: PRODUCT USED FOR UNKNOWN INDICATION
  7. PREMARIN [Concomitant]
     Indication: HORMONE REPLACEMENT THERAPY
  8. FLEXERIL [Concomitant]
     Indication: PRODUCT USED FOR UNKNOWN INDICATION
  9. LIALDA [Concomitant]
     Indication: CROHN'S DISEASE
  10. ZANTAC [Concomitant]
     Indication: ABDOMINAL PAIN UPPER

REACTIONS (9)
  - FLUSHING [None]
  - DYSPNOEA [None]
  - INCREASED UPPER AIRWAY SECRETION [None]
  - ARTHROPOD BITE [None]
  - COUGH [None]
  - HERPES ZOSTER [None]
  - FEELING HOT [None]
  - FURUNCLE [None]
  - NASOPHARYNGITIS [None]
